FAERS Safety Report 6589791-1 (Version None)
Quarter: 2010Q1

REPORT INFORMATION
  Report Type: 
  Country: None (occurrence: None)
  Receive Date: 20100212
  Receipt Date: 20100122
  Transmission Date: 20100710
  Serious: Yes (Other)
  Sender: FDA-Public Use
  Company Number: ISPH-2010-0029

PATIENT
  Age: 83 Year
  Sex: Female
  Weight: 56.2 kg

DRUGS (5)
  1. AZASITE [Suspect]
     Indication: DRY EYE
     Dosage: 1 GTT, QD, OPHTHALMIC
     Route: 047
     Dates: start: 20100112, end: 20100121
  2. AZASITE [Suspect]
     Indication: OCULAR HYPERAEMIA
     Dosage: 1 GTT, QD, OPHTHALMIC
     Route: 047
     Dates: start: 20100112, end: 20100121
  3. BONIVA [Concomitant]
  4. OSCAL (VITAMIN D NOS) [Concomitant]
  5. RESTASIS (CICLOSPORIN) [Concomitant]

REACTIONS (8)
  - DIZZINESS [None]
  - DRUG HYPERSENSITIVITY [None]
  - EPISTAXIS [None]
  - HEADACHE [None]
  - NERVOUS SYSTEM DISORDER [None]
  - NERVOUSNESS [None]
  - ROSACEA [None]
  - TREMOR [None]
